FAERS Safety Report 10038942 (Version 1)
Quarter: 2014Q1

REPORT INFORMATION
  Report Type: Spontaneous
  Country: US (occurrence: None)
  Receive Date: 20140306
  Receipt Date: 20140306
  Transmission Date: 20141002
  Serious: Yes (Other)
  Sender: FDA-Public Use
  Company Number: 163-21880-13052690

PATIENT
  Age: 57 Year
  Sex: Male

DRUGS (8)
  1. REVLIMID(LENALIDOMIDE)(25 MILLIGRAM, CAPSULES) [Suspect]
     Indication: PLASMA CELL MYELOMA
     Route: 048
     Dates: start: 201204, end: 2012
  2. LOTREL [Suspect]
     Indication: BLOOD PRESSURE
  3. ASPIRIN(ACETYLSALICYLIC ACID) [Concomitant]
  4. FENTANYL(FENTANYL)(UKNOWN) [Concomitant]
  5. MULTIVITAMINS(MULTIVITAMINS) [Concomitant]
  6. VITAMIN D (ERGOCALCIFEROL) [Concomitant]
  7. OXYCONTIN(OXYCODONE HYDROCHLORIDE) [Concomitant]
  8. EUCERIN(ERUCERIN CREME)(LOTION (NOT FOR OPHTHALMIC USE) [Concomitant]

REACTIONS (4)
  - Loss of consciousness [None]
  - Dizziness [None]
  - Hypotension [None]
  - Fluid retention [None]
